FAERS Safety Report 7648561-3 (Version None)
Quarter: 2011Q3

REPORT INFORMATION
  Report Type: 
  Country: None (occurrence: None)
  Receive Date: 20110801
  Receipt Date: 20110719
  Transmission Date: 20111222
  Serious: Yes (Other)
  Sender: FDA-Public Use
  Company Number: PHHY2011JP31357

PATIENT
  Age: 75 Year
  Sex: Male

DRUGS (3)
  1. GLEEVEC [Suspect]
     Dosage: 200 MG, DAILY
     Route: 048
     Dates: start: 20091114
  2. GLEEVEC [Suspect]
     Indication: GASTROINTESTINAL STROMAL TUMOUR
     Dosage: 400 MG, DAILY
     Route: 048
     Dates: start: 20090526, end: 20090817
  3. GLEEVEC [Suspect]
     Dosage: 200 MG, DAILY
     Route: 048
     Dates: start: 20090907, end: 20091002

REACTIONS (4)
  - EOSINOPHIL COUNT INCREASED [None]
  - HYPERKERATOSIS [None]
  - RASH [None]
  - LIP EROSION [None]
